FAERS Safety Report 15159490 (Version 1)
Quarter: 2020Q3

REPORT INFORMATION
  Report Type: Spontaneous
  Country: FI (occurrence: FI)
  Receive Date: 20180718
  Receipt Date: 20180718
  Transmission Date: 20201104
  Serious: Yes (Disabling)
  Sender: FDA-Public Use
  Company Number: IND-FI-009507513-1807FIN004945

PATIENT
  Age: 70 Year
  Sex: Female

DRUGS (4)
  1. METOHEXAL [Concomitant]
     Active Substance: METOPROLOL
     Dosage: 47.5 MG, DAILY
     Route: 048
  2. METFOREM [Concomitant]
     Active Substance: METFORMIN HYDROCHLORIDE
     Indication: DIABETES MELLITUS
     Dosage: 1 G, DAILY
     Route: 048
  3. ETORICOXIB. [Suspect]
     Active Substance: ETORICOXIB
     Indication: PAIN
     Dosage: 120 MG, DAILY
     Route: 048
     Dates: start: 20170301, end: 20180601
  4. ARCOXIA [Suspect]
     Active Substance: ETORICOXIB
     Indication: PAIN
     Dosage: 120 MG, DAILY
     Route: 048
     Dates: start: 20170301, end: 20180601

REACTIONS (3)
  - Malaise [Recovered/Resolved]
  - Dizziness [Recovered/Resolved]
  - Blood glucose increased [Recovered/Resolved]

NARRATIVE: CASE EVENT DATE: 20170301
